FAERS Safety Report 9495812 (Version 2)
Quarter: 2013Q3

REPORT INFORMATION
  Report Type: Spontaneous
  Country: US (occurrence: US)
  Receive Date: 20130903
  Receipt Date: 20130903
  Transmission Date: 20140515
  Serious: Yes (Hospitalization, Other)
  Sender: FDA-Public Use
  Company Number: US-009507513-2008-187739-NL

PATIENT
  Sex: Female
  Weight: 108.86 kg

DRUGS (3)
  1. NUVARING [Suspect]
     Indication: CONTRACEPTION
     Dosage: CONTINUING: NO
     Route: 067
     Dates: start: 200305, end: 200610
  2. LORTAB [Concomitant]
     Indication: PRODUCT USED FOR UNKNOWN INDICATION
     Dosage: 5/500
  3. CEFZIL [Concomitant]
     Indication: PRODUCT USED FOR UNKNOWN INDICATION

REACTIONS (12)
  - Pleural effusion [Recovering/Resolving]
  - Upper respiratory tract infection [Recovering/Resolving]
  - Pulmonary embolism [Recovering/Resolving]
  - Deep vein thrombosis [Unknown]
  - Pulmonary infarction [Recovering/Resolving]
  - Pleuritic pain [Not Recovered/Not Resolved]
  - Dyspnoea [Unknown]
  - Nasal septal operation [Unknown]
  - Hepatic lesion [Unknown]
  - Migraine [Unknown]
  - Blindness unilateral [Recovering/Resolving]
  - Sinus disorder [Unknown]
